FAERS Safety Report 12950774 (Version 3)
Quarter: 2016Q4

REPORT INFORMATION
  Report Type: Report from Study
  Country: MX (occurrence: MX)
  Receive Date: 20161116
  Receipt Date: 20161123
  Transmission Date: 20170207
  Serious: Yes (Other)
  Sender: FDA-Public Use
  Company Number: PHHY2016MX051335

PATIENT
  Age: 6 Year
  Sex: Male

DRUGS (3)
  1. RITALIN LA [Suspect]
     Active Substance: METHYLPHENIDATE HYDROCHLORIDE
     Indication: ATTENTION DEFICIT/HYPERACTIVITY DISORDER
     Dosage: 1 DF, QD
     Route: 065
     Dates: start: 20151114
  2. RITALIN LA [Suspect]
     Active Substance: METHYLPHENIDATE HYDROCHLORIDE
     Dosage: 0.5 DF, QD (IN THE MORNING)
     Route: 065
     Dates: start: 20151120
  3. RITALIN LA [Suspect]
     Active Substance: METHYLPHENIDATE HYDROCHLORIDE
     Dosage: 1 DF, QD
     Route: 065

REACTIONS (16)
  - Seizure [Unknown]
  - Speech disorder [Unknown]
  - Sedation [Unknown]
  - Cough [Unknown]
  - Somnolence [Not Recovered/Not Resolved]
  - Underweight [Unknown]
  - Oropharyngeal pain [Unknown]
  - Insomnia [Unknown]
  - Rapid eye movement sleep behaviour disorder [Unknown]
  - Decreased appetite [Unknown]
  - Drug prescribing error [Not Recovered/Not Resolved]
  - Dyskinesia [Unknown]
  - Epistaxis [Unknown]
  - Tic [Unknown]
  - Abnormal behaviour [Unknown]
  - Wrong technique in product usage process [Not Recovered/Not Resolved]

NARRATIVE: CASE EVENT DATE: 201511
